FAERS Safety Report 9561678 (Version 1)
Quarter: 2013Q3

REPORT INFORMATION
  Report Type: Spontaneous
  Country: US (occurrence: US)
  Receive Date: 20130927
  Receipt Date: 20130927
  Transmission Date: 20140515
  Serious: No
  Sender: FDA-Public Use
  Company Number: US-BIOGENIDEC-2013BI062314

PATIENT
  Age: 52 Year
  Sex: Male

DRUGS (2)
  1. TECFIDERA [Suspect]
     Indication: MULTIPLE SCLEROSIS
     Route: 048
     Dates: start: 20130604
  2. TECFIDERA [Suspect]
     Indication: MULTIPLE SCLEROSIS
     Route: 048
     Dates: start: 20130702

REACTIONS (6)
  - Hyperhidrosis [Unknown]
  - Flushing [Not Recovered/Not Resolved]
  - Erythema [Unknown]
  - Burning sensation [Unknown]
  - Rash generalised [Unknown]
  - Intentional drug misuse [Unknown]
